FAERS Safety Report 10825726 (Version 1)
Quarter: 2015Q1

REPORT INFORMATION
  Report Type: Report from Study
  Country: US (occurrence: US)
  Receive Date: 20150219
  Receipt Date: 20150219
  Transmission Date: 20150721
  Serious: Yes (Other)
  Sender: FDA-Public Use
  Company Number: US-ABBVIE-14K-163-1315503-00

PATIENT
  Age: 72 Year
  Sex: Female

DRUGS (1)
  1. HUMIRA [Suspect]
     Active Substance: ADALIMUMAB
     Indication: PSORIATIC ARTHROPATHY
     Route: 065
     Dates: start: 201304, end: 201310

REACTIONS (3)
  - Hip arthroplasty [Not Recovered/Not Resolved]
  - Sinusitis [Unknown]
  - Bursa removal [Not Recovered/Not Resolved]

NARRATIVE: CASE EVENT DATE: 201406
